FAERS Safety Report 6087062-3 (Version None)
Quarter: 2009Q1

REPORT INFORMATION
  Report Type: 
  Country: None (occurrence: None)
  Receive Date: 20090223
  Receipt Date: 20090219
  Transmission Date: 20090719
  Serious: Yes (Death, Other)
  Sender: FDA-Public Use
  Company Number: PHEH2008US09993

PATIENT
  Sex: Male

DRUGS (2)
  1. EXELON [Suspect]
     Dosage: UNK
     Route: 062
     Dates: start: 20081103
  2. NAMENDA [Concomitant]
     Indication: PARKINSON'S DISEASE

REACTIONS (3)
  - DEATH [None]
  - EXPIRED DRUG ADMINISTERED [None]
  - HALLUCINATION [None]
